FAERS Safety Report 7622677-X (Version None)
Quarter: 2011Q3

REPORT INFORMATION
  Report Type: 
  Country: None (occurrence: None)
  Receive Date: 20110719
  Receipt Date: 20110719
  Transmission Date: 20111222
  Serious: Yes (Hospitalization)
  Sender: FDA-Public Use
  Company Number: None

PATIENT
  Sex: Male
  Weight: 90.1 kg

DRUGS (2)
  1. RITUXIMAB (MOAB C2B8 ANTI CD20, CHIMERIC) [Suspect]
     Dosage: 1578 MG
     Dates: end: 20110705
  2. FLUDARABINE PHOSPHATE [Suspect]
     Dosage: 262.5 MG
     Dates: end: 20110705

REACTIONS (4)
  - RECTAL HAEMORRHAGE [None]
  - DEFAECATION URGENCY [None]
  - HAEMOGLOBIN DECREASED [None]
  - ANORECTAL DISCOMFORT [None]
